FAERS Safety Report 6969646-0 (Version None)
Quarter: 2010Q3

REPORT INFORMATION
  Report Type: 
  Country: None (occurrence: None)
  Receive Date: 20100902
  Receipt Date: 20100816
  Transmission Date: 20110219
  Serious: Yes (Life-Threatening)
  Sender: FDA-Public Use
  Company Number: 2010003476

PATIENT
  Age: 48 Year
  Sex: Male

DRUGS (5)
  1. ERLOTINIB (ERLOTINIB) (TOPICAL PATCH) (ERLOTINIB) [Suspect]
     Indication: ADENOCARCINOMA PANCREAS
     Dosage: (100 MG,DAILY),ORAL
     Route: 048
     Dates: start: 20100708
  2. GEMCITABINE [Suspect]
     Dosage: (1000 MG/M2,DAYS 1, 8, AND 15 OF EVERY 29 DAY CYCLE)
     Dates: start: 20100708
  3. PANITUMUMAB [Suspect]
     Dosage: (4 MG/KG,DAY 1 AND 15)
     Dates: start: 20100708
  4. COUMADIN [Suspect]
  5. LOVENOX [Suspect]

REACTIONS (3)
  - DEEP VEIN THROMBOSIS [None]
  - EMBOLISM ARTERIAL [None]
  - THROMBOSIS [None]
